FAERS Safety Report 21451102 (Version 1)
Quarter: 2022Q4

REPORT INFORMATION
  Report Type: Spontaneous
  Country: US (occurrence: US)
  Receive Date: 20221013
  Receipt Date: 20221013
  Transmission Date: 20230112
  Serious: No
  Sender: FDA-Public Use
  Company Number: US-PERRIGO-22US010155

PATIENT
  Age: 59 Year
  Sex: Male

DRUGS (2)
  1. NICOTINE POLACRILEX [Suspect]
     Active Substance: NICOTINE
     Indication: Smoking cessation therapy
     Dosage: UNKNOWN, UNKNOWN
     Route: 002
     Dates: start: 2012
  2. NICOTINE POLACRILEX [Suspect]
     Active Substance: NICOTINE
     Indication: Dependence

REACTIONS (1)
  - Nicotine dependence [Not Recovered/Not Resolved]

NARRATIVE: CASE EVENT DATE: 20120101
